FAERS Safety Report 5897702-7 (Version None)
Quarter: 2008Q3

REPORT INFORMATION
  Report Type: 
  Country: None (occurrence: None)
  Receive Date: 20080924
  Receipt Date: 20080924
  Transmission Date: 20090109
  Serious: Yes (Life-Threatening, Other)
  Sender: FDA-Public Use
  Company Number: None

PATIENT
  Sex: Female
  Weight: 95.2554 kg

DRUGS (2)
  1. VENLAFAXINE HCL [Suspect]
     Indication: DEPRESSION
     Dosage: 200MG AM 100MG PM DAILY PO
     Route: 048
  2. OXYCODONE HCL [Suspect]
     Indication: PAIN
     Dosage: 10MG 12 HOURS PO
     Route: 048

REACTIONS (11)
  - COGNITIVE DISORDER [None]
  - CONVULSION [None]
  - FALL [None]
  - FOOT FRACTURE [None]
  - INSOMNIA [None]
  - JOINT SPRAIN [None]
  - LIMB INJURY [None]
  - MEMORY IMPAIRMENT [None]
  - MUSCLE TWITCHING [None]
  - THINKING ABNORMAL [None]
  - TREMOR [None]
